FAERS Safety Report 21177943 (Version 1)
Quarter: 2022Q3

REPORT INFORMATION
  Report Type: Spontaneous
  Country: CN (occurrence: CN)
  Receive Date: 20220805
  Receipt Date: 20220805
  Transmission Date: 20221026
  Serious: Yes (Hospitalization, Other)
  Sender: FDA-Public Use
  Company Number: CN-PFIZER INC-PV202200035714

PATIENT
  Age: 75 Year
  Sex: Female
  Weight: 75 kg

DRUGS (13)
  1. CELECOXIB [Suspect]
     Active Substance: CELECOXIB
     Indication: Pain in extremity
     Dosage: 0.2 G, 2X/DAY
     Route: 048
     Dates: start: 20220615
  2. CELECOXIB [Suspect]
     Active Substance: CELECOXIB
     Indication: Pain
     Dosage: 0.2 G, 2X/DAY
     Route: 048
     Dates: end: 20220617
  3. QUETIAPINE FUMARATE [Suspect]
     Active Substance: QUETIAPINE FUMARATE
     Indication: Poor quality sleep
     Dosage: 25 MG, 1X/DAY
     Route: 048
     Dates: start: 20220616, end: 20220617
  4. AGOMELATINE [Suspect]
     Active Substance: AGOMELATINE
     Indication: Poor quality sleep
     Dosage: 25 MG, 1X/DAY
     Route: 048
     Dates: start: 20220529, end: 20220608
  5. AGOMELATINE [Suspect]
     Active Substance: AGOMELATINE
     Dosage: 50 MG, 1X/DAY
     Route: 048
     Dates: start: 20220608, end: 20220617
  6. ATORVASTATIN CALCIUM [Suspect]
     Active Substance: ATORVASTATIN CALCIUM
     Indication: Arteriosclerosis
     Dosage: 20 MG, 1X/DAY
     Route: 048
     Dates: start: 20220529, end: 20220613
  7. ATORVASTATIN CALCIUM [Suspect]
     Active Substance: ATORVASTATIN CALCIUM
     Dosage: 10 MG, 1X/DAY
     Route: 048
     Dates: start: 20220613, end: 20220617
  8. GABAPENTIN [Concomitant]
     Active Substance: GABAPENTIN
     Indication: Pain in extremity
     Dosage: 0.3 G, 2X/DAY
     Route: 048
     Dates: start: 20220529, end: 20220630
  9. GABAPENTIN [Concomitant]
     Active Substance: GABAPENTIN
     Indication: Pain
  10. BENSERAZIDE HYDROCHLORIDE\LEVODOPA [Concomitant]
     Active Substance: BENSERAZIDE HYDROCHLORIDE\LEVODOPA
     Indication: Parkinson^s disease
     Dosage: 0.75 TABLETS ORALLY IN THE MORNING AND NOON, AND 0.5 TABLETS ORALLY IN THE EVENING
     Route: 048
     Dates: start: 20220529, end: 20220630
  11. PRAMIPEXOLE DIHYDROCHLORIDE [Concomitant]
     Active Substance: PRAMIPEXOLE DIHYDROCHLORIDE
     Indication: Parkinson^s disease
     Dosage: 0.5 MG, 3X/DAY
     Route: 048
     Dates: start: 20220529
  12. PRAMIPEXOLE DIHYDROCHLORIDE [Concomitant]
     Active Substance: PRAMIPEXOLE DIHYDROCHLORIDE
     Dosage: 0.5 MG, 3X/DAY
     Route: 048
     Dates: end: 20220630
  13. ASPIRIN [Concomitant]
     Active Substance: ASPIRIN
     Indication: Arteriosclerosis
     Dosage: 0.1 G, 1X/DAY
     Route: 048
     Dates: start: 20220529, end: 20220630

REACTIONS (1)
  - Liver injury [Recovered/Resolved]

NARRATIVE: CASE EVENT DATE: 20220617
